FAERS Safety Report 7014357-9 (Version None)
Quarter: 2010Q3

REPORT INFORMATION
  Report Type: 
  Country: None (occurrence: None)
  Receive Date: 20100927
  Receipt Date: 20100914
  Transmission Date: 20110219
  Serious: Yes (Other)
  Sender: FDA-Public Use
  Company Number: AT-ELI_LILLY_AND_COMPANY-AT201009006100

PATIENT
  Age: 30 Year
  Sex: Female

DRUGS (4)
  1. ZYPREXA [Suspect]
     Indication: PSYCHOTIC DISORDER
     Dosage: UNK, 5 TO 10MG TWO TIMES
     Route: 065
  2. LAMOTRIGINE [Concomitant]
     Dosage: UNK, UNKNOWN
     Route: 065
  3. CARBAMAZEPINE [Concomitant]
     Dosage: UNK, UNKNOWN
     Route: 065
  4. CITALOPRAM HYDROBROMIDE [Concomitant]
     Dosage: UNK, UNKNOWN
     Route: 065

REACTIONS (2)
  - BLINDNESS TRANSIENT [None]
  - VISUAL FIELD DEFECT [None]
